FAERS Safety Report 9076632 (Version 1)
Quarter: 2013Q1

REPORT INFORMATION
  Report Type: Report from Study
  Country: US (occurrence: US)
  Receive Date: 20130129
  Receipt Date: 20130129
  Transmission Date: 20140127
  Serious: Yes (Other)
  Sender: FDA-Public Use
  Company Number: US-ABBOTT-12P-163-0946514-00

PATIENT
  Age: 63 Year
  Sex: Female

DRUGS (8)
  1. HUMIRA 40 MG/0.8 ML PEN [Suspect]
     Indication: PSORIASIS
     Dates: start: 20120409
  2. OMEPRAZOLE [Concomitant]
     Indication: GASTROOESOPHAGEAL REFLUX DISEASE
     Dosage: 20 MG DAILY
  3. LEVOTHYROXINE [Concomitant]
     Indication: HYPOTHYROIDISM
     Dosage: 88 MCG DAILY
  4. PAROXETINE HCL [Concomitant]
     Indication: ANXIETY
  5. IMIPRAMINE [Concomitant]
     Indication: INSOMNIA
  6. IMIPRAMINE [Concomitant]
     Indication: ANXIETY
  7. FUROSEMIDE [Concomitant]
     Indication: OEDEMA PERIPHERAL
     Dosage: 40 MG DAILY
  8. FUROSEMIDE [Concomitant]
     Indication: PROPHYLAXIS

REACTIONS (3)
  - Myocardial infarction [Recovering/Resolving]
  - Hypertension [Unknown]
  - Blood cholesterol increased [Unknown]
